FAERS Safety Report 9558218 (Version 3)
Quarter: 2013Q4

REPORT INFORMATION
  Report Type: Report from Study
  Country: US (occurrence: US)
  Receive Date: 20130926
  Receipt Date: 20131016
  Transmission Date: 20140711
  Serious: Yes (Other)
  Sender: FDA-Public Use
  Company Number: US-US-EMD SERONO, INC.-7235647

PATIENT
  Sex: Female
  Weight: 76 kg

DRUGS (1)
  1. REBIF [Suspect]
     Indication: PRODUCT USED FOR UNKNOWN INDICATION
     Route: 058
     Dates: start: 20110523

REACTIONS (7)
  - Type 2 diabetes mellitus [Recovering/Resolving]
  - Dyspnoea [Recovered/Resolved]
  - Chest pain [Recovered/Resolved]
  - Back pain [Unknown]
  - Pain in extremity [Unknown]
  - Pain [Recovered/Resolved]
  - Injection site pain [Not Recovered/Not Resolved]
